FAERS Safety Report 9870356 (Version 7)
Quarter: 2014Q2

REPORT INFORMATION
  Report Type: Report from Study
  Country: JP (occurrence: JP)
  Receive Date: 20140205
  Receipt Date: 20140403
  Transmission Date: 20141212
  Serious: Yes (Other)
  Sender: FDA-Public Use
  Company Number: JP-PFIZER INC-2014030000

PATIENT
  Age: 70 Year
  Sex: Female
  Weight: 55 kg

DRUGS (11)
  1. LIPITOR [Suspect]
     Indication: PROPHYLAXIS
     Dosage: 10 MG, DAILY
     Route: 048
     Dates: start: 20130822
  2. ASP015K [Suspect]
     Indication: RHEUMATOID ARTHRITIS
     Dosage: 50 MG, DAILY
     Route: 048
     Dates: start: 20130628, end: 20140123
  3. ASP015K [Suspect]
     Dosage: 50 MG, DAILY
     Route: 048
     Dates: start: 20130311, end: 20130529
  4. NORVASC [Concomitant]
     Indication: HYPERTENSION
     Dosage: 5 MG, DAILY
     Route: 048
  5. LOBU [Concomitant]
     Indication: RHEUMATOID ARTHRITIS
     Dosage: 120 MG, DAILY
     Route: 048
  6. MUCOSTA [Concomitant]
     Indication: GASTRITIS PROPHYLAXIS
     Dosage: 200 MG, DAILY
     Route: 048
  7. DICLOFENAC SODIUM [Concomitant]
     Indication: RHEUMATOID ARTHRITIS
     Dosage: 1 DF, DAILY
     Route: 061
  8. BAYASPIRIN [Concomitant]
     Indication: THROMBOSIS PROPHYLAXIS
     Dosage: 100 MG, 1X/DAY
     Route: 048
     Dates: end: 20140318
  9. AROPHALM [Concomitant]
     Indication: INSOMNIA
     Dosage: 0.5 MG, AS NEEDED
     Route: 048
  10. TERRA CORTRIL [Concomitant]
     Indication: INGROWING NAIL
     Dosage: UNK
     Route: 061
  11. SINGULAIR [Concomitant]
     Indication: BRONCHITIS
     Dosage: 10 MG, AS NEEDED
     Route: 048

REACTIONS (2)
  - Renal cancer stage I [Not Recovered/Not Resolved]
  - Off label use [Unknown]
